FAERS Safety Report 8308295-9 (Version None)
Quarter: 2012Q2

REPORT INFORMATION
  Report Type: 
  Country: None (occurrence: None)
  Receive Date: 20120424
  Receipt Date: 20120411
  Transmission Date: 20120825
  Serious: Yes (Hospitalization, Other)
  Sender: FDA-Public Use
  Company Number: GB-PFIZER INC-2009174404

PATIENT
  Age: 60 Year
  Sex: Female

DRUGS (1)
  1. MORPHINE SULFATE [Suspect]
     Indication: ABDOMINAL PAIN UPPER
     Dosage: 550 MG, 2X/DAY
     Route: 048

REACTIONS (12)
  - RENAL FAILURE ACUTE [None]
  - CONFUSIONAL STATE [None]
  - DEHYDRATION [None]
  - VOMITING [None]
  - URINARY TRACT INFECTION [None]
  - TOXICITY TO VARIOUS AGENTS [None]
  - MYOCLONUS [None]
  - AGITATION [None]
  - FEAR [None]
  - COMA SCALE ABNORMAL [None]
  - DIARRHOEA [None]
  - HALLUCINATION, VISUAL [None]
